FAERS Safety Report 10020149 (Version 1)
Quarter: 2014Q1

REPORT INFORMATION
  Report Type: Report from Study
  Country: DE (occurrence: DE)
  Receive Date: 20140319
  Receipt Date: 20140319
  Transmission Date: 20141002
  Serious: Yes (Hospitalization)
  Sender: FDA-Public Use
  Company Number: DE-ROCHE-1364116

PATIENT
  Age: 58 Year
  Sex: Female
  Weight: 54 kg

DRUGS (3)
  1. BEVACIZUMAB [Suspect]
     Indication: OVARIAN CANCER
     Dosage: LAST DOSE OF BEVACIZUMAB PRIOR TO SAE ON 21/FEB/2014.
     Route: 042
     Dates: start: 20131227
  2. CARBOPLATIN [Suspect]
     Indication: OVARIAN CANCER
     Dosage: LAST DOSE OF CARBOPATIN PRIOR TO SAE ON 21/FEB/2014.
     Route: 042
     Dates: start: 20131129
  3. DOXORUBICIN [Suspect]
     Indication: OVARIAN CANCER
     Dosage: LAST DOSE OF DOXORUBACIN PRIOR TO SAE ON 21/FEB/2014.
     Route: 042
     Dates: start: 20131129

REACTIONS (1)
  - Renal failure acute [Recovered/Resolved]
